FAERS Safety Report 9354080 (Version 1)
Quarter: 2013Q2

REPORT INFORMATION
  Report Type: Spontaneous
  Country: US (occurrence: None)
  Receive Date: 20130613
  Receipt Date: 20130613
  Transmission Date: 20140414
  Serious: Yes (Other)
  Sender: FDA-Public Use
  Company Number: SYM-2013-04538

PATIENT
  Age: 60 Year
  Sex: Female

DRUGS (3)
  1. WELLBUTRIN SR [Suspect]
     Indication: DEPRESSION
     Dosage: 1 IIN 1 D
     Route: 048
     Dates: start: 2005
  2. METOPROLOL [Concomitant]
  3. LORAZEPAM [Concomitant]

REACTIONS (1)
  - Skin cancer [None]
